FAERS Safety Report 24340471 (Version 1)
Quarter: 2024Q3

REPORT INFORMATION
  Report Type: Spontaneous
  Country: BR (occurrence: BR)
  Receive Date: 20240919
  Receipt Date: 20240919
  Transmission Date: 20241016
  Serious: Yes (Hospitalization)
  Sender: JUBILANT
  Company Number: BR-JUBILANT CADISTA PHARMACEUTICALS-2024JUB00072

PATIENT
  Age: 65 Year
  Sex: Female

DRUGS (2)
  1. LAMOTRIGINE [Suspect]
     Active Substance: LAMOTRIGINE
     Indication: Generalised tonic-clonic seizure
     Dosage: 25 MG, 1X/DAY
  2. LAMOTRIGINE [Suspect]
     Active Substance: LAMOTRIGINE
     Dosage: 25 MG, 2X/DAY

REACTIONS (1)
  - Acute generalised exanthematous pustulosis [Recovered/Resolved]
